FAERS Safety Report 7805006-8 (Version None)
Quarter: 2011Q4

REPORT INFORMATION
  Report Type: 
  Country: None (occurrence: None)
  Receive Date: 20111010
  Receipt Date: 20111003
  Transmission Date: 20120403
  Serious: Yes (Other)
  Sender: FDA-Public Use
  Company Number: US-GLAXOSMITHKLINE-A0921663A

PATIENT
  Sex: Male

DRUGS (2)
  1. NO CONCURRENT MEDICATION [Concomitant]
  2. AVODART [Suspect]
     Indication: ALOPECIA
     Dosage: 1CAP PER DAY
     Route: 048
     Dates: start: 20100101, end: 20100101

REACTIONS (7)
  - BLOOD CREATINE PHOSPHOKINASE INCREASED [None]
  - TRI-IODOTHYRONINE DECREASED [None]
  - MUSCLE ATROPHY [None]
  - ALOPECIA [None]
  - DRUG INEFFECTIVE [None]
  - LOSS OF LIBIDO [None]
  - ECZEMA [None]
